FAERS Safety Report 7017683-2 (Version None)
Quarter: 2010Q3

REPORT INFORMATION
  Report Type: 
  Country: None (occurrence: None)
  Receive Date: 20100928
  Receipt Date: 20100924
  Transmission Date: 20110219
  Serious: Yes (Death)
  Sender: FDA-Public Use
  Company Number: US-CUBIST-2010S1001403

PATIENT
  Sex: Female

DRUGS (2)
  1. CUBICIN [Suspect]
     Indication: ENDOCARDITIS ENTEROCOCCAL
  2. LINEZOLID [Concomitant]
     Indication: PRODUCT USED FOR UNKNOWN INDICATION

REACTIONS (2)
  - BACTERAEMIA [None]
  - PATHOGEN RESISTANCE [None]
